FAERS Safety Report 19235994 (Version 1)
Quarter: 2021Q2

REPORT INFORMATION
  Report Type: Spontaneous
  Country: US (occurrence: US)
  Receive Date: 20210510
  Receipt Date: 20210510
  Transmission Date: 20210717
  Serious: No
  Sender: FDA-Public Use
  Company Number: US-EYWA PHARMA INC.-2110361

PATIENT
  Sex: Male

DRUGS (2)
  1. ZANAFLEX [Concomitant]
     Active Substance: TIZANIDINE HYDROCHLORIDE
     Route: 065
  2. BACLOFEN. [Suspect]
     Active Substance: BACLOFEN
     Indication: AMYOTROPHIC LATERAL SCLEROSIS
     Route: 048

REACTIONS (4)
  - Insomnia [Unknown]
  - Condition aggravated [Unknown]
  - Urinary incontinence [Unknown]
  - Pollakiuria [Unknown]
